FAERS Safety Report 4945218-4 (Version None)
Quarter: 2006Q1

REPORT INFORMATION
  Report Type: 
  Country: None (occurrence: None)
  Receive Date: 20060117
  Receipt Date: 20051017
  Transmission Date: 20060701
  Serious: Yes (Life-Threatening, Hospitalization)
  Sender: FDA-Public Use
  Company Number: A03200503314

PATIENT
  Sex: 0

DRUGS (1)
  1. PLAVIX [Suspect]
     Dosage: 20 TABLETS ONCE - ORAL
     Route: 048

REACTIONS (2)
  - GASTROINTESTINAL HAEMORRHAGE [None]
  - INTENTIONAL OVERDOSE [None]
